FAERS Safety Report 5366492-9 (Version None)
Quarter: 2007Q2

REPORT INFORMATION
  Report Type: 
  Country: None (occurrence: None)
  Receive Date: 20070622
  Receipt Date: 20070614
  Transmission Date: 20071010
  Serious: Yes (Other)
  Sender: FDA-Public Use
  Company Number: US-JNJFOC-20061105782

PATIENT
  Sex: Female
  Weight: 77.11 kg

DRUGS (1)
  1. ORTHO EVRA [Suspect]
     Indication: CONTRACEPTION
     Route: 062

REACTIONS (17)
  - ANXIETY [None]
  - BLOOD TRIGLYCERIDES INCREASED [None]
  - CARDIAC MURMUR [None]
  - CHEST INJURY [None]
  - CHEST PAIN [None]
  - COUGH [None]
  - FATIGUE [None]
  - HEAD INJURY [None]
  - MITRAL VALVE INCOMPETENCE [None]
  - MITRAL VALVE PROLAPSE [None]
  - MYALGIA [None]
  - NECK INJURY [None]
  - OEDEMA PERIPHERAL [None]
  - PALPITATIONS [None]
  - PERIPHERAL COLDNESS [None]
  - PULMONARY EMBOLISM [None]
  - ROAD TRAFFIC ACCIDENT [None]
